FAERS Safety Report 7482871-8 (Version None)
Quarter: 2011Q2

REPORT INFORMATION
  Report Type: 
  Country: None (occurrence: None)
  Receive Date: 20110516
  Receipt Date: 20110128
  Transmission Date: 20111010
  Serious: No
  Sender: FDA-Public Use
  Company Number: US-BAYER-2011-013602

PATIENT
  Age: 73 Year
  Sex: Female
  Weight: 137 kg

DRUGS (2)
  1. ALEVE (CAPLET) [Suspect]
     Indication: BACK PAIN
     Dosage: 2 DF, BID, UNKNOWN BOTTLE COUNT
     Route: 048
     Dates: start: 20110128
  2. CADUET [Concomitant]
     Dosage: UNK
     Route: 048

REACTIONS (1)
  - NO ADVERSE EVENT [None]
